FAERS Safety Report 25664752 (Version 2)
Quarter: 2025Q3

REPORT INFORMATION
  Report Type: Report from Study
  Country: US (occurrence: US)
  Receive Date: 20250811
  Receipt Date: 20250908
  Transmission Date: 20251021
  Serious: Yes (Hospitalization, Other)
  Sender: ALEXION PHARMACEUTICALS
  Company Number: US-AstraZeneca-CH-00924304A

PATIENT

DRUGS (1)
  1. ULTOMIRIS [Suspect]
     Active Substance: RAVULIZUMAB-CWVZ
     Indication: Paroxysmal nocturnal haemoglobinuria
     Route: 065

REACTIONS (5)
  - Upper respiratory tract infection [Unknown]
  - Paroxysmal nocturnal haemoglobinuria [Unknown]
  - Pulmonary valve incompetence [Unknown]
  - Lung disorder [Unknown]
  - Laboratory test abnormal [Unknown]
